FAERS Safety Report 22391054 (Version 2)
Quarter: 2023Q2

REPORT INFORMATION
  Report Type: Spontaneous
  Country: US (occurrence: US)
  Receive Date: 20230601
  Receipt Date: 20230602
  Transmission Date: 20230722
  Serious: Yes (Other)
  Sender: FDA-Public Use
  Company Number: US-ABBVIE-5178970

PATIENT
  Age: 41 Year
  Sex: Male
  Weight: 147 kg

DRUGS (6)
  1. HUMIRA [Suspect]
     Active Substance: ADALIMUMAB
     Indication: Alopecia scarring
     Dosage: 2 INJECTIONS EVERY OTHER WEEK?FROM STRENGTH: 40 MG
     Route: 058
     Dates: start: 20210915
  2. METFORMIN [Concomitant]
     Active Substance: METFORMIN HYDROCHLORIDE
     Indication: Hidradenitis
     Dosage: STRENGTH: 1000MG
  3. DOXYCYCLINE [Concomitant]
     Active Substance: DOXYCYCLINE
     Indication: Pilonidal disease
  4. TAPINAROF [Concomitant]
     Active Substance: TAPINAROF
     Indication: Dermatitis
     Dosage: CREAM
  5. KENALOG [Concomitant]
     Active Substance: TRIAMCINOLONE ACETONIDE
     Indication: Pilonidal disease
  6. TRIAMCINOLONE [Concomitant]
     Active Substance: TRIAMCINOLONE
     Indication: Dermatitis
     Dosage: OINTMENT

REACTIONS (6)
  - Chronic lymphocytic leukaemia [Not Recovered/Not Resolved]
  - White blood cell count increased [Recovered/Resolved]
  - Malaise [Unknown]
  - Cytology abnormal [Not Recovered/Not Resolved]
  - Lymphocyte count increased [Not Recovered/Not Resolved]
  - Off label use [Unknown]

NARRATIVE: CASE EVENT DATE: 20230110
